FAERS Safety Report 19020762 (Version 4)
Quarter: 2021Q2

REPORT INFORMATION
  Report Type: Spontaneous
  Country: GR (occurrence: GR)
  Receive Date: 20210317
  Receipt Date: 20210406
  Transmission Date: 20210717
  Serious: Yes (Hospitalization, Other)
  Sender: FDA-Public Use
  Company Number: GR-PFIZER INC-2021250216

PATIENT
  Age: 59 Year
  Sex: Female
  Weight: 72 kg

DRUGS (7)
  1. LEVETIRACETAM. [Suspect]
     Active Substance: LEVETIRACETAM
     Indication: PARTIAL SEIZURES
     Dosage: 2500 MG DOSE DEVIDED IN 2 DOSES, TWICE PER DAY
     Route: 048
     Dates: start: 20200229
  2. OLANZAPINE. [Concomitant]
     Active Substance: OLANZAPINE
     Dosage: 7.5 MG
     Route: 048
  3. OMEPRAZOLE. [Concomitant]
     Active Substance: OMEPRAZOLE
     Dosage: 40 MG, 2X/DAY
     Route: 042
     Dates: start: 20200229, end: 20200420
  4. VALPROIC ACID. [Suspect]
     Active Substance: VALPROIC ACID
     Indication: PARTIAL SEIZURES
     Dosage: 2400 MG DOSE DIVIDE IN 4 TIMES
     Route: 042
     Dates: start: 20200301, end: 20200408
  5. LORAZEPAM. [Concomitant]
     Active Substance: LORAZEPAM
     Dosage: 0.5 MG, 1X/DAY
     Route: 048
  6. CEFTRIAXONE. [Concomitant]
     Active Substance: CEFTRIAXONE
     Dosage: 2 G, 1X/DAY
     Route: 042
     Dates: start: 20200229, end: 20200302
  7. VANCOMYCIN [Concomitant]
     Active Substance: VANCOMYCIN
     Dosage: 1 G, 2X/DAY
     Route: 042
     Dates: start: 20200229, end: 20200302

REACTIONS (6)
  - Mastication disorder [Recovered/Resolved]
  - Partial seizures [Recovered/Resolved]
  - Dysphagia [Recovered/Resolved]
  - Gait disturbance [Recovered/Resolved]
  - Dysarthria [Recovered/Resolved]
  - Muscle strength abnormal [Recovered/Resolved]

NARRATIVE: CASE EVENT DATE: 20200229
